FAERS Safety Report 7368524-5 (Version None)
Quarter: 2011Q1

REPORT INFORMATION
  Report Type: 
  Country: None (occurrence: None)
  Receive Date: 20110323
  Receipt Date: 20110310
  Transmission Date: 20110831
  Serious: Yes (Hospitalization)
  Sender: FDA-Public Use
  Company Number: US-JNJFOC-20110307746

PATIENT
  Age: 22 Year
  Sex: Female

DRUGS (2)
  1. IBUPROFEN [Suspect]
  2. IBUPROFEN [Suspect]
     Indication: MENSTRUAL DISCOMFORT

REACTIONS (1)
  - TOXIC EPIDERMAL NECROLYSIS [None]
